FAERS Safety Report 11980562 (Version 2)
Quarter: 2016Q1

REPORT INFORMATION
  Report Type: Spontaneous
  Country: IT (occurrence: IT)
  Receive Date: 20160129
  Receipt Date: 20160203
  Transmission Date: 20160526
  Serious: Yes (Death, Hospitalization, Other)
  Sender: FDA-Public Use
  Company Number: IT-PFIZER INC-2016054237

PATIENT
  Age: 16 Year
  Sex: Male

DRUGS (9)
  1. PARACETAMOL [Concomitant]
     Active Substance: ACETAMINOPHEN
  2. SOLU-MEDROL [Suspect]
     Active Substance: METHYLPREDNISOLONE SODIUM SUCCINATE
     Indication: ENCEPHALITIS AUTOIMMUNE
     Dosage: 750 MG, DAILY
     Route: 041
     Dates: start: 20151005, end: 20160118
  3. CIPROFLOXACIN /00697203/ [Concomitant]
     Indication: URINARY TRACT INFECTION
  4. CLEXANE [Concomitant]
     Active Substance: ENOXAPARIN SODIUM
  5. MIDAZOLAM [Concomitant]
     Active Substance: MIDAZOLAM\MIDAZOLAM HYDROCHLORIDE
  6. MABTHERA [Suspect]
     Active Substance: RITUXIMAB
     Indication: ENCEPHALITIS AUTOIMMUNE
     Dosage: 750 MG, CYCLIC (5CYCLE, ONCE A WEEK FOR ONE MONTHS 19NOV, 26NOV, 03DEC, 10DEC AND THEN ON 07JAN2016)
     Route: 041
     Dates: start: 20151119, end: 20160107
  7. BACTRIM [Concomitant]
     Active Substance: SULFAMETHOXAZOLE\TRIMETHOPRIM
  8. DEPAKIN [Concomitant]
     Active Substance: VALPROATE SODIUM
  9. VENITAL [Concomitant]

REACTIONS (9)
  - Pericardial effusion [Unknown]
  - Product use issue [Unknown]
  - Hepatic enzyme abnormal [Unknown]
  - Thrombocytopenia [Unknown]
  - Pleural effusion [Unknown]
  - Disseminated intravascular coagulation [Fatal]
  - Mouth haemorrhage [Unknown]
  - Urinary tract infection bacterial [Unknown]
  - Sepsis [Fatal]

NARRATIVE: CASE EVENT DATE: 20160119
